FAERS Safety Report 9238378 (Version 1)
Quarter: 2013Q2

REPORT INFORMATION
  Report Type: Spontaneous
  Country: BR (occurrence: None)
  Receive Date: 20130416
  Receipt Date: 20130416
  Transmission Date: 20140414
  Serious: Yes (Hospitalization, Disabling)
  Sender: FDA-Public Use
  Company Number: ENT 2013-0068

PATIENT
  Age: 76 Year
  Sex: Male

DRUGS (1)
  1. COMTAN (ENTACAPONE) [Suspect]
     Indication: PARKINSON^S DISEASE
     Dosage: 3 DOSAGE FORM (1 DOSAGE FORM, 3 IN 1 D) 3 YEARS AGO
     Route: 048

REACTIONS (2)
  - Fall [None]
  - Abasia [None]
